FAERS Safety Report 8831965 (Version 1)
Quarter: 2012Q4

REPORT INFORMATION
  Report Type: 
  Country: CA (occurrence: CA)
  Receive Date: 20121009
  Receipt Date: 20121009
  Transmission Date: 20130627
  Serious: Yes (Life-Threatening, Hospitalization)
  Sender: FDA-Public Use
  Company Number: CA-CELGENEUS-028-20785-12092180

PATIENT
  Age: 47 Year
  Sex: Female

DRUGS (4)
  1. THALOMID [Suspect]
     Indication: NEUROPATHIC PAIN
     Dosage: 100 Milligram
     Route: 048
     Dates: start: 20120710
  2. THALOMID [Suspect]
     Dosage: 50 Milligram
     Route: 048
     Dates: start: 20120817, end: 20120918
  3. BCP [Concomitant]
     Indication: BIRTH CONTROL
     Route: 065
     Dates: start: 20120909, end: 20120918
  4. ASA [Concomitant]
     Indication: THROMBOSIS PROPHYLAXIS
     Dosage: 81 Milligram
     Route: 065
     Dates: start: 20120710, end: 20120918

REACTIONS (7)
  - Deep vein thrombosis [Recovered/Resolved]
  - Pulmonary embolism [Recovered/Resolved]
  - Diverticulitis [Recovered/Resolved]
  - Muscle spasms [Not Recovered/Not Resolved]
  - Diarrhoea [Not Recovered/Not Resolved]
  - Pain in extremity [Not Recovered/Not Resolved]
  - Dyspnoea [Recovered/Resolved]
